FAERS Safety Report 23370237 (Version 2)
Quarter: 2024Q1

REPORT INFORMATION
  Report Type: Report from Study
  Country: US (occurrence: US)
  Receive Date: 20240105
  Receipt Date: 20240305
  Transmission Date: 20240410
  Serious: No
  Sender: FDA-Public Use
  Company Number: US-002147023-NVSC2024US001967

PATIENT
  Sex: Female

DRUGS (1)
  1. KESIMPTA [Suspect]
     Active Substance: OFATUMUMAB
     Indication: Product used for unknown indication
     Dosage: 20 MG (0.4ML), QMO
     Route: 058

REACTIONS (4)
  - Product temperature excursion issue [Unknown]
  - Hypoaesthesia [Unknown]
  - Headache [Unknown]
  - Pain [Unknown]
